FAERS Safety Report 8241446-3 (Version None)
Quarter: 2012Q1

REPORT INFORMATION
  Report Type: 
  Country: None (occurrence: None)
  Receive Date: 20120314
  Receipt Date: 20120125
  Transmission Date: 20120608
  Serious: No
  Sender: FDA-Public Use
  Company Number: E7389-02003-SPO-US

PATIENT
  Sex: Female

DRUGS (1)
  1. HALAVEN [Suspect]
     Indication: BREAST CANCER
     Dosage: INTRAVENOUS INFUSION
     Route: 042

REACTIONS (5)
  - HEADACHE [None]
  - DIZZINESS [None]
  - ALOPECIA [None]
  - DRY EYE [None]
  - FATIGUE [None]
